FAERS Safety Report 7016138-9 (Version None)
Quarter: 2010Q3

REPORT INFORMATION
  Report Type: 
  Country: None (occurrence: None)
  Receive Date: 20100927
  Receipt Date: 20100713
  Transmission Date: 20110219
  Serious: No
  Sender: FDA-Public Use
  Company Number: US-ASTRAZENECA-2010SE32828

PATIENT
  Sex: Female

DRUGS (1)
  1. ARIMIDEX [Suspect]
     Route: 048
     Dates: start: 20100301

REACTIONS (4)
  - BURNING SENSATION [None]
  - CHILLS [None]
  - PRURITUS [None]
  - VAGINAL ODOUR [None]
